FAERS Safety Report 10202905 (Version 1)
Quarter: 2014Q2

REPORT INFORMATION
  Report Type: Spontaneous
  Country: US (occurrence: US)
  Receive Date: 20140522
  Receipt Date: 20140522
  Transmission Date: 20141212
  Serious: No
  Sender: FDA-Public Use
  Company Number: US-SA-2014SA043457

PATIENT
  Sex: Female

DRUGS (6)
  1. LANTUS [Suspect]
     Indication: TYPE 2 DIABETES MELLITUS
     Dosage: DOSE : 18 - 30 UNITS
     Route: 058
  2. LANTUS [Suspect]
     Indication: TYPE 2 DIABETES MELLITUS
     Dosage: DOSE: 18 - 30 UNITS
     Route: 058
     Dates: start: 201403
  3. CHOLESTEROL- AND TRIGLYCERIDE REDUCERS [Concomitant]
  4. ORAL BLOOD GLUCOSE LOWERING DRUGS [Concomitant]
  5. KOMBIGLYZE [Concomitant]
     Dosage: START: OCT (YEAR UNKNOWN)
  6. LISINOPRIL [Concomitant]
     Indication: HYPERTENSION

REACTIONS (7)
  - Burning sensation [Unknown]
  - Urticaria [Recovered/Resolved]
  - Skin lesion [Not Recovered/Not Resolved]
  - Pain in extremity [Unknown]
  - Pruritus [Not Recovered/Not Resolved]
  - Drug dose omission [Unknown]
  - Incorrect product storage [Unknown]
